FAERS Safety Report 16830288 (Version 2)
Quarter: 2019Q4

REPORT INFORMATION
  Report Type: Spontaneous
  Country: JP (occurrence: JP)
  Receive Date: 20190920
  Receipt Date: 20191018
  Transmission Date: 20200122
  Serious: Yes (Hospitalization, Other)
  Sender: FDA-Public Use
  Company Number: JP-AMGEN-JPNSP2019116731

PATIENT
  Age: 77 Year
  Sex: Female
  Weight: 30 kg

DRUGS (14)
  1. EVENITY [Suspect]
     Active Substance: ROMOSOZUMAB-AQQG
     Indication: OSTEOPOROSIS
     Dosage: 210 MILLIGRAM, QMO
     Route: 058
     Dates: start: 20190517, end: 20190621
  2. REBAMIPIDE OTSUKA [Concomitant]
     Dosage: 100 MILLIGRAM, TID
  3. HALFDIGOXIN KY [Concomitant]
     Dosage: 0.125 MILLIGRAM, QD (AFTER BREAKFAST)
  4. NEXIUM [Concomitant]
     Active Substance: ESOMEPRAZOLE MAGNESIUM
     Dosage: 20 MILLIGRAM, QD (AFTER BREAKFAST)
  5. ONEALFA [Concomitant]
     Active Substance: ALFACALCIDOL
     Dosage: 0.5 MICROGRAM, QD (AFTER BREAKFAST)
  6. URSO [Concomitant]
     Active Substance: URSODIOL
     Dosage: 100 MILLIGRAM, TID
  7. ZOLPIDEM TARTRATE. [Concomitant]
     Active Substance: ZOLPIDEM TARTRATE
     Dosage: 5 MILLIGRAM, QD (BEFORE BEDTIME)
  8. TENORMIN [Concomitant]
     Active Substance: ATENOLOL
     Dosage: 50 MILLIGRAM, QD (AFTER BREAKFAST)
  9. PURSENNID [SENNA ALEXANDRINA LEAF] [Concomitant]
     Dosage: 12 MILLIGRAM, QD (BEFORE BEDTIME)
  10. HALCION [Concomitant]
     Active Substance: TRIAZOLAM
     Dosage: 0.125 MILLIGRAM, QD (BEFORE BEDTIME)
  11. VASOLAN [VERAPAMIL HYDROCHLORIDE] [Concomitant]
     Active Substance: VERAPAMIL HYDROCHLORIDE
     Dosage: 40 MILLIGRAM, TID
  12. WARFARIN [WARFARIN POTASSIUM] [Concomitant]
     Active Substance: WARFARIN POTASSIUM
     Dosage: 1 MILLIGRAM, QD (AFTER BREAKFAST)
  13. LASIX [Concomitant]
     Active Substance: FUROSEMIDE
     Dosage: 20 MILLIGRAM, QD (AFTER BREAKFAST)
  14. MAGNESIUM OXIDE. [Concomitant]
     Active Substance: MAGNESIUM OXIDE
     Dosage: 330 MILLIGRAM, TID

REACTIONS (4)
  - Malaise [Unknown]
  - Weight increased [Recovering/Resolving]
  - Discomfort [Unknown]
  - Cardiac failure acute [Recovering/Resolving]

NARRATIVE: CASE EVENT DATE: 2019
